FAERS Safety Report 5066000-6 (Version None)
Quarter: 2006Q3

REPORT INFORMATION
  Report Type: 
  Country: None (occurrence: None)
  Receive Date: 20060726
  Receipt Date: 20060714
  Transmission Date: 20061208
  Serious: Yes (Hospitalization)
  Sender: FDA-Public Use
  Company Number: 2006088246

PATIENT
  Age: 69 Year
  Sex: Female

DRUGS (5)
  1. SUTENT [Suspect]
     Indication: METASTATIC RENAL CELL CARCINOMA
     Dosage: 50 MG (50 MG, DAILY - INTERVAL: EVERY DAY), ORAL
     Route: 048
     Dates: start: 20060619, end: 20060703
  2. FORTECORTIN (DEXAMETHASONE) [Concomitant]
  3. OMEPRAZOLE [Concomitant]
  4. LORAZEPAM [Concomitant]
  5. TERMALGIN (PARACETAMOL) [Concomitant]

REACTIONS (2)
  - ASTHENIA [None]
  - PETECHIAE [None]
